FAERS Safety Report 6701938-2 (Version None)
Quarter: 2010Q2

REPORT INFORMATION
  Report Type: 
  Country: None (occurrence: None)
  Receive Date: 20100429
  Receipt Date: 20100426
  Transmission Date: 20101027
  Serious: Yes (Death)
  Sender: FDA-Public Use
  Company Number: JP-ROCHE-679399

PATIENT
  Sex: Female
  Weight: 52 kg

DRUGS (2)
  1. PEGASYS [Suspect]
     Indication: HEPATITIS C
     Dosage: ACTION TAKEN: DISCONTINUED
     Route: 058
     Dates: start: 20100112, end: 20100112
  2. LOXONIN [Concomitant]
     Route: 048
     Dates: start: 20100112, end: 20100112

REACTIONS (2)
  - BRAIN HERNIATION [None]
  - CEREBRAL HAEMORRHAGE [None]
